FAERS Safety Report 14100022 (Version 2)
Quarter: 2017Q4

REPORT INFORMATION
  Report Type: Spontaneous
  Country: JP (occurrence: JP)
  Receive Date: 20171017
  Receipt Date: 20171106
  Transmission Date: 20180321
  Serious: Yes (Other)
  Sender: FDA-Public Use
  Company Number: JP-PFIZER INC-2017443412

PATIENT
  Age: 62 Year
  Sex: Female

DRUGS (1)
  1. WYPAX 0.5 [Suspect]
     Active Substance: LORAZEPAM
     Dosage: 1 UNK, UNK

REACTIONS (1)
  - Open angle glaucoma [Not Recovered/Not Resolved]

NARRATIVE: CASE EVENT DATE: 20150330
